FAERS Safety Report 21134918 (Version 3)
Quarter: 2025Q2

REPORT INFORMATION
  Report Type: Report from Study
  Country: JP (occurrence: JP)
  Receive Date: 20220727
  Receipt Date: 20250520
  Transmission Date: 20250717
  Serious: Yes (Death, Other)
  Sender: ROCHE
  Company Number: JP-CHUGAI-2022028348

PATIENT
  Age: 49 Year
  Sex: Male

DRUGS (2)
  1. AVASTIN [Suspect]
     Active Substance: BEVACIZUMAB
     Indication: Hepatocellular carcinoma
     Route: 042
     Dates: start: 20220127
  2. TECENTRIQ [Suspect]
     Active Substance: ATEZOLIZUMAB
     Indication: Hepatocellular carcinoma
     Route: 042
     Dates: start: 20220127

REACTIONS (6)
  - Arteriosclerosis [Recovered/Resolved]
  - Dermatitis acneiform [Recovered/Resolved]
  - Hypoglycaemia [Recovered/Resolved]
  - Proteinuria [Unknown]
  - Hypertension [Unknown]
  - Disease progression [Fatal]

NARRATIVE: CASE EVENT DATE: 20220217
